FAERS Safety Report 6370733-9 (Version None)
Quarter: 2009Q3

REPORT INFORMATION
  Report Type: 
  Country: None (occurrence: None)
  Receive Date: 20090918
  Receipt Date: 20090902
  Transmission Date: 20100115
  Serious: Yes (Hospitalization)
  Sender: FDA-Public Use
  Company Number: 2009BI028377

PATIENT
  Sex: Male

DRUGS (11)
  1. ZEVALIN [Suspect]
     Indication: FOLLICLE CENTRE LYMPHOMA, FOLLICULAR GRADE I, II, III STAGE IV
     Dosage: 796 MBQ; 1X; IV
     Route: 042
     Dates: start: 20090407, end: 20090414
  2. ZEVALIN [Suspect]
     Indication: LYMPHOMA
     Dosage: 796 MBQ; 1X; IV
     Route: 042
     Dates: start: 20090407, end: 20090414
  3. RITUXIMAB [Concomitant]
  4. LOXONIN [Concomitant]
  5. POLARAMINE [Concomitant]
  6. LEVOFLOXACIN [Concomitant]
  7. AM [Concomitant]
  8. LECICARBON [Concomitant]
  9. ................ [Concomitant]
  10. FLUDARA [Concomitant]
  11. FLUDEOXYGLUCOSE [Concomitant]

REACTIONS (2)
  - BONE MARROW FAILURE [None]
  - NAUSEA [None]
